FAERS Safety Report 23693346 (Version 1)
Quarter: 2024Q2

REPORT INFORMATION
  Report Type: Spontaneous
  Country: US (occurrence: US)
  Receive Date: 20240401
  Receipt Date: 20240401
  Transmission Date: 20240716
  Serious: No
  Sender: FDA-Public Use
  Company Number: US-PFIZER INC-202400074246

PATIENT
  Age: 28 Year
  Sex: Male

DRUGS (2)
  1. CIBINQO [Suspect]
     Active Substance: ABROCITINIB
     Indication: Dermatitis atopic
     Dosage: 100MG DAILY
  2. CIBINQO [Suspect]
     Active Substance: ABROCITINIB
     Indication: Illness

REACTIONS (1)
  - Therapeutic product effect incomplete [Unknown]
